FAERS Safety Report 16041412 (Version 1)
Quarter: 2019Q1

REPORT INFORMATION
  Report Type: Spontaneous
  Country: US (occurrence: US)
  Receive Date: 20190306
  Receipt Date: 20190306
  Transmission Date: 20190418
  Serious: No
  Sender: FDA-Public Use
  Company Number: US-AKORN PHARMACEUTICALS-2018AKN02045

PATIENT
  Age: 67 Year
  Sex: Male
  Weight: 94.3 kg

DRUGS (1)
  1. MYORISAN [Suspect]
     Active Substance: ISOTRETINOIN
     Indication: DERMAL CYST
     Dosage: 40 MG, 1X/DAY
     Route: 048
     Dates: start: 2018, end: 20181213

REACTIONS (5)
  - Fatigue [Not Recovered/Not Resolved]
  - Product use in unapproved indication [Recovered/Resolved]
  - Muscular weakness [Not Recovered/Not Resolved]
  - Off label use [Recovered/Resolved]
  - Dry skin [Not Recovered/Not Resolved]

NARRATIVE: CASE EVENT DATE: 2018
